FAERS Safety Report 19400022 (Version 4)
Quarter: 2021Q3

REPORT INFORMATION
  Report Type: Spontaneous
  Country: US (occurrence: US)
  Receive Date: 20210610
  Receipt Date: 20210827
  Transmission Date: 20211014
  Serious: No
  Sender: FDA-Public Use
  Company Number: US-BIOGEN-2021BI00983128

PATIENT
  Age: 29 Year
  Sex: Male

DRUGS (4)
  1. AVONEX PEN [Suspect]
     Active Substance: INTERFERON BETA-1A
  2. AVONEX PEN [Suspect]
     Active Substance: INTERFERON BETA-1A
  3. AVONEX PEN [Suspect]
     Active Substance: INTERFERON BETA-1A
     Indication: MULTIPLE SCLEROSIS
     Route: 030
     Dates: start: 20210119, end: 202105
  4. AVONEX PEN [Suspect]
     Active Substance: INTERFERON BETA-1A

REACTIONS (16)
  - Drug ineffective [Unknown]
  - Decreased appetite [Unknown]
  - Injection site erythema [Recovered/Resolved]
  - Injection site hyperaesthesia [Recovered/Resolved]
  - Flatulence [Recovered/Resolved]
  - Device difficult to use [Unknown]
  - Injection site bruising [Unknown]
  - Diarrhoea [Unknown]
  - Muscular weakness [Unknown]
  - Influenza like illness [Recovered/Resolved]
  - Product dose omission issue [Unknown]
  - Gastrointestinal pain [Recovered/Resolved]
  - Abdominal pain upper [Unknown]
  - Feeling abnormal [Unknown]
  - Injection site pain [Recovered/Resolved]
  - Fatigue [Not Recovered/Not Resolved]

NARRATIVE: CASE EVENT DATE: 2021
